FAERS Safety Report 17546004 (Version 1)
Quarter: 2020Q1

REPORT INFORMATION
  Report Type: Spontaneous
  Country: DK (occurrence: DK)
  Receive Date: 20200316
  Receipt Date: 20200316
  Transmission Date: 20200409
  Serious: Yes (Disabling)
  Sender: FDA-Public Use
  Company Number: NVSC2020DK071744

PATIENT
  Age: 70 Year
  Sex: Female
  Weight: 112 kg

DRUGS (2)
  1. KISQALI [Suspect]
     Active Substance: RIBOCICLIB
     Indication: BREAST CANCER METASTATIC
     Dosage: 600 MG, QD (STYRKE: 200 MG)
     Route: 048
     Dates: start: 20191011
  2. EXEMESTAN ACCORD [Concomitant]
     Active Substance: EXEMESTANE
     Indication: BREAST CANCER
     Dosage: STYRKE: 25 MG. DOSIS: UKENDT
     Route: 048
     Dates: start: 20191011

REACTIONS (3)
  - Skin discolouration [Recovered/Resolved with Sequelae]
  - Gangrene [Recovered/Resolved with Sequelae]
  - Necrosis [Recovered/Resolved with Sequelae]

NARRATIVE: CASE EVENT DATE: 20191020
